FAERS Safety Report 19048964 (Version 1)
Quarter: 2021Q1

REPORT INFORMATION
  Report Type: Report from Study
  Country: US (occurrence: US)
  Receive Date: 20210323
  Receipt Date: 20210323
  Transmission Date: 20210420
  Serious: Yes (Life-Threatening, Hospitalization)
  Sender: FDA-Public Use
  Company Number: US-EXELIXIS-CABO-21038741

PATIENT
  Sex: Female
  Weight: 65.58 kg

DRUGS (8)
  1. TYLENOL WITH CODEINE [Concomitant]
     Active Substance: ACETAMINOPHEN\CODEINE PHOSPHATE
  2. MIRTAZAPINE. [Concomitant]
     Active Substance: MIRTAZAPINE
  3. TRAZODONE HYDROCHLORIDE. [Concomitant]
     Active Substance: TRAZODONE HYDROCHLORIDE
  4. LEVOTHYROXINE. [Concomitant]
     Active Substance: LEVOTHYROXINE
  5. EVEROLIMUS. [Concomitant]
     Active Substance: EVEROLIMUS
  6. CABOMETYX [Suspect]
     Active Substance: CABOZANTINIB S-MALATE
     Indication: RENAL CANCER
     Dosage: 40 MG, QD
     Route: 048
  7. AMLODIPINE BESYLATE. [Concomitant]
     Active Substance: AMLODIPINE BESYLATE
  8. DICLOFENAC [Concomitant]
     Active Substance: DICLOFENAC

REACTIONS (1)
  - Terminal state [Unknown]
